FAERS Safety Report 25829144 (Version 1)
Quarter: 2025Q3

REPORT INFORMATION
  Report Type: Spontaneous
  Country: JP (occurrence: JP)
  Receive Date: 20250922
  Receipt Date: 20250922
  Transmission Date: 20251021
  Serious: Yes (Other)
  Sender: ALEXION PHARMACEUTICALS
  Company Number: JP-AstraZeneca-CH-00952852A

PATIENT
  Age: 63 Year
  Sex: Male
  Weight: 64 kg

DRUGS (2)
  1. IMFINZI [Suspect]
     Active Substance: DURVALUMAB
     Indication: Hepatocellular carcinoma
     Dates: start: 20250514, end: 20250904
  2. IMJUDO [Suspect]
     Active Substance: TREMELIMUMAB\TREMELIMUMAB-ACTL
     Indication: Hepatocellular carcinoma
     Dosage: 300 MILLIGRAM, QD
     Dates: start: 20250514, end: 20250514

REACTIONS (1)
  - Renal disorder [Not Recovered/Not Resolved]

NARRATIVE: CASE EVENT DATE: 20250904
